FAERS Safety Report 15964538 (Version 1)
Quarter: 2019Q1

REPORT INFORMATION
  Report Type: Spontaneous
  Country: GB (occurrence: GB)
  Receive Date: 20190215
  Receipt Date: 20190215
  Transmission Date: 20190417
  Serious: Yes (Other)
  Sender: FDA-Public Use
  Company Number: PHHY2019GB022143

PATIENT
  Age: 87 Year
  Sex: Male

DRUGS (3)
  1. DORZOLAMIDE [Suspect]
     Active Substance: DORZOLAMIDE
     Indication: GLAUCOMA
     Route: 047
  2. BIMATOPROST;TIMOLOL UNK [Suspect]
     Active Substance: BIMATOPROST\TIMOLOL MALEATE
     Indication: EXFOLIATION GLAUCOMA
     Dosage: BIMATOPROST 0.3 MG/ML+TIMOLOL 5 MG/ ML
     Route: 061
  3. BRINZOLAMIDE/BRIMONIDINE [Suspect]
     Active Substance: BRIMONIDINE TARTRATE\BRINZOLAMIDE
     Indication: EXFOLIATION GLAUCOMA
     Dosage: BRINZOLAMIDE 10MG/ML+ BRIMONIDINE
     Route: 061

REACTIONS (2)
  - Visual field defect [Not Recovered/Not Resolved]
  - Intraocular pressure increased [Recovering/Resolving]

NARRATIVE: CASE EVENT DATE: 201510
